FAERS Safety Report 19195993 (Version 4)
Quarter: 2021Q2

REPORT INFORMATION
  Report Type: Spontaneous
  Country: NL (occurrence: NL)
  Receive Date: 20210429
  Receipt Date: 20210609
  Transmission Date: 20210717
  Serious: Yes (Other)
  Sender: FDA-Public Use
  Company Number: NL-BAYER-2021-129938

PATIENT
  Age: 18 Year
  Sex: Female

DRUGS (1)
  1. KYLEENA [Suspect]
     Active Substance: LEVONORGESTREL
     Indication: CONTRACEPTION
     Dosage: 17.5 ?G PER DAY CONTINUOUSLY
     Route: 015
     Dates: start: 20210118, end: 20210318

REACTIONS (4)
  - Device use error [None]
  - Device physical property issue [None]
  - Device use error [None]
  - Device breakage [None]

NARRATIVE: CASE EVENT DATE: 20210202
